FAERS Safety Report 7524828-4 (Version None)
Quarter: 2011Q2

REPORT INFORMATION
  Report Type: 
  Country: None (occurrence: None)
  Receive Date: 20110602
  Receipt Date: 20110602
  Transmission Date: 20111010
  Serious: Yes (Death, Life-Threatening, Hospitalization, Other)
  Sender: FDA-Public Use
  Company Number: None

PATIENT
  Age: 77 Year
  Sex: Female
  Weight: 104.3273 kg

DRUGS (2)
  1. METHADONE HCL [Suspect]
     Indication: BACK PAIN
     Dosage: METHADONE UNSURE PO
     Route: 048
     Dates: start: 20020204, end: 20040915
  2. DARVON [Suspect]
     Indication: BACK PAIN
     Dosage: 65MG EVERY 4HR./OR/NEED PO
     Route: 048
     Dates: start: 20000204, end: 20040915

REACTIONS (8)
  - GAIT DISTURBANCE [None]
  - INADEQUATE ANALGESIA [None]
  - DEPRESSED LEVEL OF CONSCIOUSNESS [None]
  - DISORIENTATION [None]
  - CARDIAC ARREST [None]
  - CONFUSIONAL STATE [None]
  - MEMORY IMPAIRMENT [None]
  - BRADYCARDIA [None]
